FAERS Safety Report 19745034 (Version 1)
Quarter: 2021Q3

REPORT INFORMATION
  Report Type: Spontaneous
  Country: CO (occurrence: CO)
  Receive Date: 20210825
  Receipt Date: 20210825
  Transmission Date: 20211014
  Serious: Yes (Other)
  Sender: FDA-Public Use
  Company Number: CO-PFIZER INC-202101041791

PATIENT
  Sex: Female

DRUGS (1)
  1. REAMPLA [Suspect]
     Active Substance: PALBOCICLIB
     Dosage: UNK
     Route: 048
     Dates: start: 20210518, end: 202106

REACTIONS (1)
  - Decreased immune responsiveness [Recovered/Resolved]

NARRATIVE: CASE EVENT DATE: 202106
